FAERS Safety Report 19624637 (Version 2)
Quarter: 2021Q3

REPORT INFORMATION
  Report Type: Spontaneous
  Country: CA (occurrence: CA)
  Receive Date: 20210729
  Receipt Date: 20210908
  Transmission Date: 20211014
  Serious: Yes (Other)
  Sender: FDA-Public Use
  Company Number: CA-CELLTRION INC.-2021CA006341

PATIENT

DRUGS (8)
  1. INFLECTRA [Suspect]
     Active Substance: INFLIXIMAB-DYYB
     Indication: CROHN^S DISEASE
     Dosage: 300 MG Q 0, 2, 6 WEEK DOSE, THEN Q 8 WEEKS
     Route: 042
  2. INFLECTRA [Suspect]
     Active Substance: INFLIXIMAB-DYYB
     Dosage: 300 MG, AT 0, 2, 6 WEEK DOSE, THEN EVERY 8 WEEKS
     Route: 042
     Dates: start: 20210424
  3. INFLECTRA [Suspect]
     Active Substance: INFLIXIMAB-DYYB
     Dosage: 350 MG, 1 DOSE AS PER WEIGHT
     Route: 042
     Dates: start: 20210715, end: 20210715
  4. INFLECTRA [Suspect]
     Active Substance: INFLIXIMAB-DYYB
     Dosage: 350 MG, 1 DOSE AS PER WEIGHT
     Route: 042
     Dates: start: 20210715, end: 20210715
  5. INFLECTRA [Suspect]
     Active Substance: INFLIXIMAB-DYYB
     Dosage: 300 MG, AT 0, 2, 6 WEEK DOSE, THEN EVERY 8 WEEKS
     Route: 042
     Dates: start: 20210408
  6. PREDNISONE. [Concomitant]
     Active Substance: PREDNISONE
     Dosage: 1 DF, 1X/DAY 5 PILLS A DAY
     Route: 065
  7. TYLENOL [Concomitant]
     Active Substance: ACETAMINOPHEN
     Dosage: 1 DF, AS NEEDED
     Route: 065
  8. ASACOL [Concomitant]
     Active Substance: MESALAMINE
     Dosage: 800 MG, 1X/DAY
     Route: 065

REACTIONS (2)
  - Fatigue [Not Recovered/Not Resolved]
  - Weight increased [Unknown]

NARRATIVE: CASE EVENT DATE: 202104
